FAERS Safety Report 16834680 (Version 1)
Quarter: 2019Q3

REPORT INFORMATION
  Report Type: Spontaneous
  Country: US (occurrence: US)
  Receive Date: 20190920
  Receipt Date: 20190920
  Transmission Date: 20191005
  Serious: Yes (Other)
  Sender: FDA-Public Use
  Company Number: US-ASTRAZENECA-2019SF30625

PATIENT
  Age: 48 Year
  Sex: Female
  Weight: 77.1 kg

DRUGS (2)
  1. XANAX [Suspect]
     Active Substance: ALPRAZOLAM
     Route: 065
  2. BEVESPI AEROSPHERE [Suspect]
     Active Substance: FORMOTEROL FUMARATE\GLYCOPYRROLATE
     Route: 055

REACTIONS (8)
  - Throat irritation [Unknown]
  - Neoplasm malignant [Unknown]
  - Abscess [Unknown]
  - Rash [Not Recovered/Not Resolved]
  - Headache [Unknown]
  - Dyspnoea [Not Recovered/Not Resolved]
  - Gastrooesophageal reflux disease [Unknown]
  - Staphylococcal infection [Unknown]

NARRATIVE: CASE EVENT DATE: 2015
